FAERS Safety Report 4987988-5 (Version None)
Quarter: 2006Q2

REPORT INFORMATION
  Report Type: 
  Country: None (occurrence: None)
  Receive Date: 20060424
  Receipt Date: 20060412
  Transmission Date: 20061013
  Serious: Yes (Other)
  Sender: FDA-Public Use
  Company Number: 2006-DE-01927GD

PATIENT

DRUGS (1)
  1. NAPROXEN [Suspect]
     Dosage: 1000 MG (TWICE DAILY)

REACTIONS (2)
  - CONDITION AGGRAVATED [None]
  - INFLAMMATORY BOWEL DISEASE [None]
